FAERS Safety Report 5596662-6 (Version None)
Quarter: 2008Q1

REPORT INFORMATION
  Report Type: 
  Country: None (occurrence: None)
  Receive Date: 20080118
  Receipt Date: 20080109
  Transmission Date: 20080703
  Serious: Yes (Death)
  Sender: FDA-Public Use
  Company Number: US-PFIZER INC-2008003145

PATIENT
  Age: 51 Year
  Sex: Male

DRUGS (10)
  1. SERTRALINE [Suspect]
     Route: 048
  2. VALSARTAN [Suspect]
     Route: 048
  3. FINASTERIDE [Suspect]
     Route: 048
  4. DIPYRIDAMOLE [Suspect]
     Route: 048
  5. ASPIRIN [Suspect]
     Route: 048
  6. LEVETIRACETAM [Suspect]
     Route: 048
  7. NTZ LONG-ACTING [Suspect]
     Route: 048
  8. FUROSEMIDE [Suspect]
     Route: 048
  9. EZETIMIBE/SIMVASTATIN [Suspect]
     Route: 048
  10. METOLAZONE [Suspect]
     Route: 048

REACTIONS (2)
  - COMPLETED SUICIDE [None]
  - DEATH [None]
